FAERS Safety Report 8292219-7 (Version None)
Quarter: 2012Q2

REPORT INFORMATION
  Report Type: 
  Country: None (occurrence: None)
  Receive Date: 20120417
  Receipt Date: 20120411
  Transmission Date: 20120825
  Serious: Yes (Other)
  Sender: FDA-Public Use
  Company Number: NL-ELI_LILLY_AND_COMPANY-NL201204003585

PATIENT
  Sex: Female
  Weight: 68 kg

DRUGS (3)
  1. FORTEO [Suspect]
     Indication: OSTEOPOROSIS
     Dosage: 20 UG, QD
     Route: 058
     Dates: start: 20120203
  2. SPIRIVA [Concomitant]
     Indication: LUNG DISORDER
     Dosage: 2.5 UG, OTHER
     Route: 055
     Dates: start: 20060101
  3. FLUTICASONE PROPIONATE/SALMETEROL [Concomitant]
     Indication: LUNG DISORDER
     Dosage: 2 DF, OTHER
     Route: 055
     Dates: start: 20030101

REACTIONS (1)
  - LUNG NEOPLASM MALIGNANT [None]
